FAERS Safety Report 4975768-6 (Version None)
Quarter: 2006Q2

REPORT INFORMATION
  Report Type: 
  Country: None (occurrence: None)
  Receive Date: 20060411
  Receipt Date: 20060324
  Transmission Date: 20061013
  Serious: Yes (Other)
  Sender: FDA-Public Use
  Company Number: GB200603005942

PATIENT
  Age: 78 Year
  Sex: Female

DRUGS (5)
  1. FORTEO [Suspect]
     Indication: OSTEOPOROSIS
     Dosage: DAILY (1/D), SUBCUTANEOUS
     Route: 058
     Dates: start: 20041101, end: 20060131
  2. FORTEO [Concomitant]
  3. LISINOPRIL [Concomitant]
  4. PARACETAMOL [Concomitant]
  5. MAXOLON [Concomitant]

REACTIONS (2)
  - PANCYTOPENIA [None]
  - RASH PRURITIC [None]
